FAERS Safety Report 6367814-2 (Version None)
Quarter: 2009Q3

REPORT INFORMATION
  Report Type: 
  Country: None (occurrence: None)
  Receive Date: 20090921
  Receipt Date: 20090910
  Transmission Date: 20100115
  Serious: Yes (Life-Threatening, Hospitalization)
  Sender: FDA-Public Use
  Company Number: US-KINGPHARMUSA00001-K200801308

PATIENT
  Age: 76 Year
  Sex: Female
  Weight: 72 kg

DRUGS (12)
  1. THROMBIN NOS [Suspect]
     Indication: OPERATIVE HAEMORRHAGE
     Dosage: 1000 U, ONCE
     Route: 061
     Dates: start: 20080401, end: 20080401
  2. THROMBIN NOS [Suspect]
     Indication: WOUND CLOSURE
     Dosage: UNK, SINGLE
     Route: 061
     Dates: start: 20070901, end: 20070901
  3. THROMBIN NOS [Suspect]
     Indication: DEBRIDEMENT
  4. LOVENOX [Suspect]
     Indication: POST PROCEDURAL COMPLICATION
     Dosage: UNK
     Route: 058
     Dates: start: 20080401, end: 20080401
  5. LEVAQUIN [Concomitant]
     Dosage: 500 MG, QD
  6. TIMOLOL MALEATE [Concomitant]
     Dosage: 1 GTT BOTH EYES, QAM
     Route: 031
  7. TRAVOPROST [Concomitant]
     Dosage: 1 GTT BOTH EYES, QHS
     Route: 031
  8. COLACE [Concomitant]
     Dosage: 100 MG, BID
  9. NORCO [Concomitant]
     Dosage: 1-2 QID, PRN
  10. PHYTONADIONE [Concomitant]
     Dosage: 10 MG, QD
  11. ALBUTEROL [Concomitant]
     Dosage: 2.5 MG, Q4H
  12. METOPROLOL TARTRATE [Concomitant]
     Dosage: 25 MG, BID
     Route: 048

REACTIONS (6)
  - ANAEMIA [None]
  - COAGULOPATHY [None]
  - FACTOR V INHIBITION [None]
  - HAEMORRHAGE [None]
  - POST PROCEDURAL HAEMATOMA [None]
  - SKIN NECROSIS [None]
